FAERS Safety Report 6940031-0 (Version None)
Quarter: 2010Q3

REPORT INFORMATION
  Report Type: 
  Country: None (occurrence: None)
  Receive Date: 20100825
  Receipt Date: 20100817
  Transmission Date: 20110219
  Serious: Yes (Other)
  Sender: FDA-Public Use
  Company Number: US-PFIZER INC-2010104261

PATIENT

DRUGS (2)
  1. GEODON [Suspect]
     Dosage: 80 MG, 1X/DAY
     Route: 048
  2. GEODON [Suspect]
     Dosage: 120MG DAILY
     Route: 048

REACTIONS (1)
  - AKATHISIA [None]
